FAERS Safety Report 10369293 (Version 1)
Quarter: 2014Q1

REPORT INFORMATION
  Report Type: Spontaneous
  Country: US (occurrence: None)
  Receive Date: 20140306
  Receipt Date: 20140306
  Transmission Date: 20141002
  Serious: Yes (Hospitalization, Other)
  Sender: FDA-Public Use
  Company Number: 163-21880-13090969

PATIENT
  Age: 46 Year
  Sex: Male
  Weight: 225 kg

DRUGS (7)
  1. REVLIMID [Suspect]
     Indication: PLASMA CELL MYELOMA
     Dosage: 25 MG, 1 IN 1 D, PO  07/12/2013
     Route: 048
     Dates: start: 20130712
  2. ZOLOFT (SERTRALINE HYDROCHLORIDE) [Concomitant]
  3. METFORMIN HCL (METFORMIN HYDROCHLORIDE) [Concomitant]
  4. LISINOPRIL [Concomitant]
  5. GLYBERIDE (GLIBENCLAMIDE) [Concomitant]
  6. WELLBUTRIN (BUPROPION HYDROCHLORIDE) [Concomitant]
  7. LAMICTAL (LAMOTRIGINE) [Concomitant]

REACTIONS (3)
  - Malaise [None]
  - Renal failure [None]
  - Rash [None]
